FAERS Safety Report 12644739 (Version 2)
Quarter: 2016Q3

REPORT INFORMATION
  Report Type: Spontaneous
  Country: US (occurrence: US)
  Receive Date: 20160811
  Receipt Date: 20160929
  Transmission Date: 20161109
  Serious: No
  Sender: FDA-Public Use
  Company Number: US-PFIZER INC-2016375744

PATIENT
  Sex: Male

DRUGS (1)
  1. LYRICA [Suspect]
     Active Substance: PREGABALIN
     Indication: NEUROPATHY PERIPHERAL
     Dosage: 50 MG, 3X/DAY

REACTIONS (5)
  - Condition aggravated [Unknown]
  - Insomnia [Unknown]
  - Headache [Unknown]
  - Burning sensation [Unknown]
  - Neuropathy peripheral [Unknown]
